FAERS Safety Report 23829560 (Version 2)
Quarter: 2024Q4

REPORT INFORMATION
  Report Type: Spontaneous
  Country: US (occurrence: US)
  Receive Date: 20240508
  Receipt Date: 20241001
  Transmission Date: 20250114
  Serious: No
  Sender: GLAXOSMITHKLINE
  Company Number: US-GSK-US2024AMR055146

PATIENT
  Sex: Female

DRUGS (1)
  1. BENLYSTA [Suspect]
     Active Substance: BELIMUMAB
     Indication: Systemic lupus erythematosus
     Dosage: 200 MG/ML, WE
     Route: 058

REACTIONS (9)
  - Cough [Unknown]
  - Headache [Unknown]
  - Nausea [Unknown]
  - Hypotension [Unknown]
  - Rash [Unknown]
  - Skin irritation [Unknown]
  - Secretion discharge [Unknown]
  - Injection site pain [Unknown]
  - Product dose omission issue [Unknown]
